FAERS Safety Report 23112171 (Version 1)
Quarter: 2023Q4

REPORT INFORMATION
  Report Type: Spontaneous
  Country: JP (occurrence: JP)
  Receive Date: 20231026
  Receipt Date: 20231026
  Transmission Date: 20240110
  Serious: Yes (Hospitalization)
  Sender: FDA-Public Use
  Company Number: JP-PRINSTON PHARMACEUTICAL INC.-2023PRN00546

PATIENT
  Age: 77 Year
  Sex: Female

DRUGS (4)
  1. DONEPEZIL [Suspect]
     Active Substance: DONEPEZIL
     Dosage: INITIAL UNKNOWN REGIMEN
  2. DONEPEZIL [Suspect]
     Active Substance: DONEPEZIL
     Dosage: 150 MG, ONCE
  3. DONEPEZIL [Suspect]
     Active Substance: DONEPEZIL
     Dosage: RESUMED UNKNOWN REGIMEN (HOSPITAL DAY 9)
  4. CILOSTAZOL [Concomitant]
     Active Substance: CILOSTAZOL

REACTIONS (4)
  - Fall [Recovered/Resolved]
  - Tremor [Recovered/Resolved]
  - Mydriasis [Recovering/Resolving]
  - Accidental overdose [Recovered/Resolved]
